FAERS Safety Report 15545233 (Version 1)
Quarter: 2018Q4

REPORT INFORMATION
  Report Type: Spontaneous
  Country: US (occurrence: US)
  Receive Date: 20181024
  Receipt Date: 20181024
  Transmission Date: 20190205
  Serious: No
  Sender: FDA-Public Use
  Company Number: US-PFIZER INC-2018428904

PATIENT
  Sex: Female

DRUGS (3)
  1. LYRICA [Suspect]
     Active Substance: PREGABALIN
     Dosage: 100 MG, 2X/DAY [WAS TAKING 50 MG SAMPLES OF LYRICA/TAKING TWO PILLS TWICE A DAY]
  2. LYRICA [Suspect]
     Active Substance: PREGABALIN
     Dosage: 200 MG, 2X/DAY; [TOOK TWO 100MG LYRICA TWICE A DAY FOR A TOTAL OF 400 MG DAILY]
  3. LYRICA [Suspect]
     Active Substance: PREGABALIN
     Dosage: 100 MG, 2X/DAY; [100 MG LYRICA TAKING IT TWICE A DAY AS PRESCRIBED]

REACTIONS (2)
  - Wrong dose [Unknown]
  - Somnolence [Unknown]
